FAERS Safety Report 10457591 (Version 4)
Quarter: 2015Q1

REPORT INFORMATION
  Report Type: Spontaneous
  Country: US (occurrence: US)
  Receive Date: 20140916
  Receipt Date: 20150115
  Transmission Date: 20150720
  Serious: Yes (Hospitalization, Disabling, Other)
  Sender: FDA-Public Use
  Company Number: US-MERCK-1409USA007064

PATIENT
  Sex: Male
  Weight: 85.34 kg

DRUGS (1)
  1. JANUVIA [Suspect]
     Active Substance: SITAGLIPTIN PHOSPHATE
     Indication: TYPE 2 DIABETES MELLITUS
     Dosage: 100 MG, QD
     Route: 048
     Dates: start: 20080206, end: 20120604

REACTIONS (50)
  - Adenocarcinoma pancreas [Not Recovered/Not Resolved]
  - Pancreatic insufficiency [Recovering/Resolving]
  - Malabsorption [Recovering/Resolving]
  - Abdominal abscess [Unknown]
  - Oedema peripheral [Unknown]
  - Upper respiratory tract infection [Recovering/Resolving]
  - Pancreaticoduodenectomy [Unknown]
  - Anaemia [Unknown]
  - Influenza like illness [Recovered/Resolved]
  - Faeces pale [Unknown]
  - Thrombosis [Unknown]
  - Hypotension [Unknown]
  - Musculoskeletal pain [Unknown]
  - Treatment noncompliance [Unknown]
  - Hepatectomy [Unknown]
  - Clostridium difficile colitis [Recovered/Resolved]
  - Cholestasis [Unknown]
  - Cholecystitis chronic [Not Recovered/Not Resolved]
  - Chromaturia [Unknown]
  - Intestinal dilatation [Unknown]
  - Hypoglycaemia [Unknown]
  - Haemorrhoids [Unknown]
  - Ascites [Unknown]
  - Malignant pleural effusion [Unknown]
  - Dyspepsia [Recovered/Resolved]
  - Atelectasis [Unknown]
  - Haematoma infection [Unknown]
  - Diabetes mellitus inadequate control [Recovering/Resolving]
  - Metastases to lymph nodes [Unknown]
  - Hospitalisation [Unknown]
  - Dilatation ventricular [Unknown]
  - Acute respiratory failure [Unknown]
  - Metastases to lung [Unknown]
  - Radiotherapy [Unknown]
  - Pleural effusion [Unknown]
  - Large intestinal polypectomy [Unknown]
  - Generalised oedema [Recovering/Resolving]
  - Explorative laparotomy [Unknown]
  - Leukocytosis [Unknown]
  - Ascites [Unknown]
  - Impaired gastric emptying [Unknown]
  - Abdominal wound dehiscence [Recovering/Resolving]
  - Proteinuria [Unknown]
  - Gait disturbance [Unknown]
  - Intestinal polyp [Unknown]
  - Atrial fibrillation [Unknown]
  - Malnutrition [Recovering/Resolving]
  - Tachycardia [Recovered/Resolved]
  - Anaemia [Unknown]
  - Pulmonary oedema [Unknown]

NARRATIVE: CASE EVENT DATE: 20120530
